FAERS Safety Report 6631193-3 (Version None)
Quarter: 2010Q1

REPORT INFORMATION
  Report Type: 
  Country: None (occurrence: None)
  Receive Date: 20100309
  Receipt Date: 20100226
  Transmission Date: 20100710
  Serious: Yes (Other)
  Sender: FDA-Public Use
  Company Number: 230047M10NLD

PATIENT
  Age: 37 Year
  Sex: Female
  Weight: 86 kg

DRUGS (1)
  1. REBIF [Suspect]
     Indication: MULTIPLE SCLEROSIS
     Dosage: 44 MCG, 3 IN 1 WEEKS, SUBCUTANEOUS
     Route: 058
     Dates: start: 20020901

REACTIONS (2)
  - BREAST CANCER FEMALE [None]
  - INJECTION SITE REACTION [None]
